FAERS Safety Report 15783486 (Version 1)
Quarter: 2019Q1

REPORT INFORMATION
  Report Type: Spontaneous
  Country: US (occurrence: US)
  Receive Date: 20190102
  Receipt Date: 20190102
  Transmission Date: 20190417
  Serious: Yes (Other)
  Sender: FDA-Public Use
  Company Number: US-PRAGMA PHARMACEUTICALS, LLC-2018PRG00266

PATIENT
  Sex: Male

DRUGS (9)
  1. VALIUM [Concomitant]
     Active Substance: DIAZEPAM
  2. DECADRON [Suspect]
     Active Substance: DEXAMETHASONE
     Dosage: UNK
  3. LENVIMA [Suspect]
     Active Substance: LENVATINIB
     Indication: HEPATIC CANCER
     Dosage: 36 MG, 1X/DAY
     Route: 048
  4. SELENIUM [Concomitant]
     Active Substance: SELENIUM
  5. VITAMIN D3 [Concomitant]
     Active Substance: CHOLECALCIFEROL
  6. MORPHINE [Concomitant]
     Active Substance: MORPHINE
  7. COQ10 [Concomitant]
     Active Substance: UBIDECARENONE
  8. DECADRON [Suspect]
     Active Substance: DEXAMETHASONE
     Dosage: UNK
  9. OXYCODONE [Concomitant]
     Active Substance: OXYCODONE

REACTIONS (2)
  - Adrenal insufficiency [Recovering/Resolving]
  - Drug titration error [Recovered/Resolved]
